FAERS Safety Report 8761496 (Version 2)
Quarter: 2012Q4

REPORT INFORMATION
  Report Type: 
  Country: CO (occurrence: CO)
  Receive Date: 20120829
  Receipt Date: 20121218
  Transmission Date: 20130627
  Serious: Yes (Other)
  Sender: FDA-Public Use
  Company Number: CO-AMGEN-COLSP2012054155

PATIENT
  Age: 61 Year
  Sex: Female

DRUGS (11)
  1. ENBREL [Suspect]
     Indication: RHEUMATOID ARTHRITIS
     Dosage: 50 mg, weekly
     Route: 058
     Dates: start: 201205
  2. LYRICA [Suspect]
     Indication: FACIAL PAIN
     Dosage: 75 mg, two per day
     Route: 048
     Dates: start: 201206
  3. LYRICA [Suspect]
     Indication: FACIAL PAIN
  4. MEDROL                             /00049601/ [Suspect]
     Indication: OEDEMA PERIPHERAL
     Dosage: 8 mg, 1x/day
     Route: 048
     Dates: start: 20120817
  5. ARAVA [Concomitant]
     Indication: ARTHRITIS
     Dosage: 20 mg, 1x/day
     Route: 048
     Dates: start: 201207
  6. ARAVA [Concomitant]
     Indication: RHEUMATOID ARTHRITIS
     Dosage: 20 mg, alternate day
     Route: 048
     Dates: start: 201112
  7. EUTIROX [Concomitant]
     Indication: HYPERTHYROIDISM
     Dosage: 75 mg, 1x/day in fasting
     Route: 065
     Dates: start: 2004
  8. TEGRETOL [Concomitant]
     Indication: TRIGEMINAL NERVE DISORDER
     Dosage: one tablet and a half of 200mg, 1x/day
     Route: 065
     Dates: start: 2004
  9. CALCIUM [Concomitant]
     Indication: PROPHYLAXIS
     Dosage: 600 mg, 1x/day
     Route: 065
     Dates: start: 2006
  10. FOLIC ACID [Concomitant]
     Dosage: 1 mg, UNK
     Route: 065
  11. VITAMIN D /00107901/ [Concomitant]
     Indication: PROPHYLAXIS
     Dosage: UNK
     Route: 065

REACTIONS (10)
  - Oedema peripheral [Recovered/Resolved]
  - Gastritis [Recovered/Resolved]
  - Facial pain [Not Recovered/Not Resolved]
  - Rash generalised [Recovered/Resolved]
  - Pruritus generalised [Recovered/Resolved]
  - Pain in extremity [Not Recovered/Not Resolved]
  - Tonsillar hypertrophy [Not Recovered/Not Resolved]
  - Arthritis [Not Recovered/Not Resolved]
  - Pain in jaw [Not Recovered/Not Resolved]
  - Musculoskeletal pain [Not Recovered/Not Resolved]
